FAERS Safety Report 21714556 (Version 1)
Quarter: 2022Q4

REPORT INFORMATION
  Report Type: Spontaneous
  Country: FR (occurrence: FR)
  Receive Date: 20221212
  Receipt Date: 20221212
  Transmission Date: 20230113
  Serious: Yes (Death)
  Sender: FDA-Public Use
  Company Number: FR-BAXTER-2022BAX026234

PATIENT
  Age: 84 Year
  Sex: Female

DRUGS (3)
  1. CYCLOPHOSPHAMIDE [Suspect]
     Active Substance: CYCLOPHOSPHAMIDE
     Indication: Product used for unknown indication
     Dosage: 550 MG/DOSE 1 DOSE(S)/WEEK 2 WEEK(S)/CYCLE (TREATMENT LINE NUMBER 1, DURATION: 16.3 MONTHS)
     Route: 065
  2. DEXAMETHASONE [Suspect]
     Active Substance: DEXAMETHASONE
     Indication: Product used for unknown indication
     Dosage: 20 MG/DOSE 1 DOSE(S)/WEEK 3 WEEK(S)/CYCLE (TREATMENT LINE NUMBER 1, DURATION: 16.3 MONTHS)
     Route: 065
  3. BORTEZOMIB [Suspect]
     Active Substance: BORTEZOMIB
     Indication: Product used for unknown indication
     Dosage: 2.2 MG/DOSE 1 DOSE(S)/WEEK 3 WEEK(S)/CYCLE (TREATMENT LINE NUMBER 1, DURATION: 16.3 MONTHS)
     Route: 065

REACTIONS (1)
  - Disease progression [Fatal]
